FAERS Safety Report 25866021 (Version 2)
Quarter: 2025Q4

REPORT INFORMATION
  Report Type: Report from Study
  Country: CA (occurrence: CA)
  Receive Date: 20250930
  Receipt Date: 20251008
  Transmission Date: 20260118
  Serious: Yes (Hospitalization)
  Sender: ABBVIE
  Company Number: CA-ABBVIE-6477545

PATIENT
  Age: 84 Year
  Sex: Female

DRUGS (2)
  1. SKYRIZI [Suspect]
     Active Substance: RISANKIZUMAB-RZAA
     Indication: Crohn^s disease
     Dosage: FORM STRENGTH 360MG/2.4ML 1 SC PEN FROM WEEK 12, THEN ALL THE 8 WEEKS, LAST SKYRIZI DOSE: 15 AUG ...
     Route: 058
     Dates: start: 20250815
  2. ENEMA (SODIUM PHOSPHATE, DIBASIC\SODIUM PHOSPHATE, MONOBASIC) [Concomitant]
     Active Substance: SODIUM PHOSPHATE, DIBASIC\SODIUM PHOSPHATE, MONOBASIC
     Indication: Product used for unknown indication
     Dosage: FOR 14 DAYS, FOAM ENEMAS

REACTIONS (4)
  - Urinary tract infection [Unknown]
  - Blood urine present [Unknown]
  - Genital herpes zoster [Unknown]
  - Anorectal herpes zoster [Unknown]

NARRATIVE: CASE EVENT DATE: 20250101
